FAERS Safety Report 7761839-8 (Version None)
Quarter: 2011Q3

REPORT INFORMATION
  Report Type: 
  Country: None (occurrence: None)
  Receive Date: 20110920
  Receipt Date: 20110908
  Transmission Date: 20111222
  Serious: Yes (Other)
  Sender: FDA-Public Use
  Company Number: US-US-EMD SERONO, INC.-7082125

PATIENT
  Sex: Female

DRUGS (7)
  1. CARAFATE [Concomitant]
     Indication: GASTROOESOPHAGEAL REFLUX DISEASE
  2. TEGRETOL [Concomitant]
     Indication: SENSORY DISTURBANCE
  3. ADDERALL 5 [Concomitant]
     Indication: ATTENTION DEFICIT/HYPERACTIVITY DISORDER
  4. REBIF [Suspect]
     Indication: MULTIPLE SCLEROSIS
     Route: 058
     Dates: start: 20100702
  5. CELEXA [Concomitant]
     Indication: DEPRESSION
  6. ENABLEX [Concomitant]
     Indication: NEUROGENIC BLADDER
  7. ANTIDEPRESSANT [Concomitant]

REACTIONS (3)
  - ANAEMIA [None]
  - LYMPHOCYTE COUNT NORMAL [None]
  - WHITE BLOOD CELL COUNT DECREASED [None]
